FAERS Safety Report 19811831 (Version 1)
Quarter: 2021Q3

REPORT INFORMATION
  Report Type: Spontaneous
  Country: US (occurrence: US)
  Receive Date: 20210909
  Receipt Date: 20210909
  Transmission Date: 20211014
  Serious: No
  Sender: FDA-Public Use
  Company Number: US-NIPPON SHINYAKU-NIP-2021-000039

PATIENT

DRUGS (1)
  1. VILTOLARSEN. [Suspect]
     Active Substance: VILTOLARSEN
     Indication: PRODUCT USED FOR UNKNOWN INDICATION
     Dosage: 3600 MILLIGRAM, QWK
     Route: 042

REACTIONS (4)
  - Catheter site inflammation [Unknown]
  - Neck pain [Unknown]
  - Malaise [Unknown]
  - Catheter site infection [Unknown]

NARRATIVE: CASE EVENT DATE: 2021
